FAERS Safety Report 7277280-0 (Version None)
Quarter: 2011Q1

REPORT INFORMATION
  Report Type: 
  Country: None (occurrence: None)
  Receive Date: 20110202
  Receipt Date: 20110202
  Transmission Date: 20110831
  Serious: No
  Sender: FDA-Public Use
  Company Number: None

PATIENT
  Sex: Female

DRUGS (1)
  1. FENTANYL [Suspect]
     Dosage: APPLY 1 PATCH EVERY 3 DAYS TRANSDERMAL
     Route: 062
     Dates: start: 20101122, end: 20101222

REACTIONS (1)
  - DRUG INEFFECTIVE [None]
